FAERS Safety Report 8180639-0 (Version None)
Quarter: 2012Q1

REPORT INFORMATION
  Report Type: 
  Country: None (occurrence: None)
  Receive Date: 20120302
  Receipt Date: 20120227
  Transmission Date: 20120608
  Serious: Yes (Death, Other)
  Sender: FDA-Public Use
  Company Number: US-PFIZER INC-2012028327

PATIENT
  Sex: Male
  Weight: 81.633 kg

DRUGS (2)
  1. FOLIC ACID [Concomitant]
     Dosage: UNK
  2. SULFASALAZINE [Suspect]
     Indication: COLITIS ULCERATIVE
     Dosage: 500 MG, 2X/DAY
     Route: 048

REACTIONS (6)
  - MEDICATION RESIDUE [None]
  - PRODUCT SOLUBILITY ABNORMAL [None]
  - HYPERTENSION [None]
  - DRUG INEFFECTIVE [None]
  - DEATH [None]
  - BLOOD CHOLESTEROL INCREASED [None]
